FAERS Safety Report 11277822 (Version 4)
Quarter: 2016Q1

REPORT INFORMATION
  Report Type: Spontaneous
  Country: US (occurrence: US)
  Receive Date: 20150716
  Receipt Date: 20160120
  Transmission Date: 20160525
  Serious: Yes (Hospitalization, Other)
  Sender: FDA-Public Use
  Company Number: US-ACTELION-A-NJ2015-120920

PATIENT
  Age: 40 Year
  Sex: Male

DRUGS (4)
  1. VELETRI [Suspect]
     Active Substance: EPOPROSTENOL
     Indication: PULMONARY ARTERIAL HYPERTENSION
     Dosage: 20 NG/KG, PER MIN
     Route: 042
     Dates: start: 20140303
  2. COUMADIN [Concomitant]
     Active Substance: WARFARIN SODIUM
  3. REVATIO [Concomitant]
     Active Substance: SILDENAFIL CITRATE
  4. VELETRI [Suspect]
     Active Substance: EPOPROSTENOL
     Dosage: 22 NG/KG, UNK
     Route: 042
     Dates: start: 20140306

REACTIONS (17)
  - Abdominal pain [Recovering/Resolving]
  - Epistaxis [Unknown]
  - Oropharyngeal pain [Unknown]
  - Liver function test increased [Not Recovered/Not Resolved]
  - Ammonia increased [Unknown]
  - Rash pruritic [Unknown]
  - Decreased appetite [Unknown]
  - Cholelithiasis [Unknown]
  - Pyrexia [Unknown]
  - Condition aggravated [Not Recovered/Not Resolved]
  - Constipation [Unknown]
  - Coagulopathy [Not Recovered/Not Resolved]
  - Biliary cirrhosis primary [Not Recovered/Not Resolved]
  - Biopsy liver [Not Recovered/Not Resolved]
  - Faeces discoloured [Unknown]
  - Chills [Unknown]
  - Vomiting [Unknown]

NARRATIVE: CASE EVENT DATE: 20150623
